FAERS Safety Report 17154159 (Version 6)
Quarter: 2020Q2

REPORT INFORMATION
  Report Type: Report from Study
  Country: GB (occurrence: GB)
  Receive Date: 20191213
  Receipt Date: 20200528
  Transmission Date: 20200713
  Serious: Yes (Death, Other)
  Sender: FDA-Public Use
  Company Number: PHHY2019GB178928

PATIENT
  Age: 73 Year
  Sex: Male

DRUGS (4)
  1. SANDOSTATIN LAR DEPOT [Suspect]
     Active Substance: OCTREOTIDE ACETATE
     Dosage: 30 MG, Q3W
     Route: 030
  2. SANDOSTATIN LAR DEPOT [Suspect]
     Active Substance: OCTREOTIDE ACETATE
     Dosage: 30 MG, Q3W
     Route: 030
  3. SANDOSTATIN LAR DEPOT [Suspect]
     Active Substance: OCTREOTIDE ACETATE
     Indication: NEUROENDOCRINE TUMOUR
     Dosage: 30 MG, QMO
     Route: 030
  4. SANDOSTATIN LAR DEPOT [Suspect]
     Active Substance: OCTREOTIDE ACETATE
     Dosage: 30 MG, Q3W (PATIENT HAD BEEN TAKING TREATMENT FOR MORE THAN 12 MONTHS AND CONTINUES)
     Route: 030
     Dates: start: 20180326

REACTIONS (17)
  - Frequent bowel movements [Not Recovered/Not Resolved]
  - Peripheral swelling [Recovering/Resolving]
  - Malignant neoplasm progression [Fatal]
  - Weight decreased [Unknown]
  - International normalised ratio increased [Unknown]
  - Crying [Not Recovered/Not Resolved]
  - Testicular swelling [Recovering/Resolving]
  - Cardiac valve thickening [Not Recovered/Not Resolved]
  - White blood cell count decreased [Unknown]
  - Pruritus [Not Recovered/Not Resolved]
  - Infrequent bowel movements [Recovering/Resolving]
  - Flushing [Not Recovered/Not Resolved]
  - Neurogenic bowel [Recovering/Resolving]
  - Swelling [Recovering/Resolving]
  - Neuroendocrine tumour [Fatal]
  - Pain in extremity [Not Recovered/Not Resolved]
  - Inappropriate schedule of product administration [Unknown]

NARRATIVE: CASE EVENT DATE: 201910
